FAERS Safety Report 7292764-7 (Version None)
Quarter: 2011Q1

REPORT INFORMATION
  Report Type: 
  Country: None (occurrence: None)
  Receive Date: 20110210
  Receipt Date: 20110210
  Transmission Date: 20110831
  Serious: Yes (Hospitalization)
  Sender: FDA-Public Use
  Company Number: None

PATIENT
  Age: 57 Year
  Sex: Male
  Weight: 77 kg

DRUGS (1)
  1. CEFTRIAXONE SODIUM [Suspect]
     Dates: start: 20100103, end: 20100103

REACTIONS (2)
  - ANAPHYLACTIC REACTION [None]
  - TRYPTASE INCREASED [None]
